FAERS Safety Report 4876985-6 (Version None)
Quarter: 2005Q4

REPORT INFORMATION
  Report Type: 
  Country: None (occurrence: None)
  Receive Date: 20051206
  Receipt Date: 20050921
  Transmission Date: 20060501
  Serious: No
  Sender: FDA-Public Use
  Company Number: USA0509108573

PATIENT
  Age: 53 Year
  Sex: Female
  Weight: 114 kg

DRUGS (2)
  1. CYMBALTA [Suspect]
     Indication: DEPRESSION
     Dosage: 30 MG DAY
     Dates: start: 20050916
  2. AMBIEN [Concomitant]

REACTIONS (3)
  - PAIN OF SKIN [None]
  - PRURITUS [None]
  - RASH [None]
